FAERS Safety Report 9258482 (Version 1)
Quarter: 2013Q2

REPORT INFORMATION
  Report Type: Spontaneous
  Country: CA (occurrence: CA)
  Receive Date: 20130426
  Receipt Date: 20130503
  Transmission Date: 20140414
  Serious: Yes (Other)
  Sender: FDA-Public Use
  Company Number: PHHY2013CA040425

PATIENT
  Sex: Female

DRUGS (2)
  1. BISOPROLOL SANDOZ [Suspect]
  2. COVERSYL//PERINDOPRIL ERBUMINE [Interacting]

REACTIONS (3)
  - Drug interaction [Recovered/Resolved]
  - Nausea [Recovered/Resolved]
  - Asthenia [Recovered/Resolved]
